FAERS Safety Report 20109787 (Version 1)
Quarter: 2021Q4

REPORT INFORMATION
  Report Type: Spontaneous
  Country: US (occurrence: None)
  Receive Date: 20211124
  Receipt Date: 20211124
  Transmission Date: 20220303
  Serious: No
  Sender: FDA-Public Use
  Company Number: None

PATIENT
  Sex: Female

DRUGS (1)
  1. AIMOVIG [Suspect]
     Active Substance: ERENUMAB-AOOE
     Indication: Migraine without aura
     Dosage: FREQUENCY : MONTHLY;?
     Route: 058
     Dates: start: 19210924

REACTIONS (2)
  - Constipation [None]
  - Diarrhoea [None]
